FAERS Safety Report 6813630-4 (Version None)
Quarter: 2010Q3

REPORT INFORMATION
  Report Type: 
  Country: None (occurrence: None)
  Receive Date: 20100701
  Receipt Date: 20100622
  Transmission Date: 20110219
  Serious: Yes (Hospitalization)
  Sender: FDA-Public Use
  Company Number: US-ROCHE-711761

PATIENT
  Sex: Male
  Weight: 57.2 kg

DRUGS (22)
  1. BEVACIZUMAB [Suspect]
     Indication: GLIOBLASTOMA MULTIFORME
     Route: 042
     Dates: start: 20100507
  2. BEVACIZUMAB [Suspect]
     Route: 042
     Dates: start: 20100603
  3. TEMOZOLOMIDE [Suspect]
     Indication: GLIOBLASTOMA MULTIFORME
     Route: 048
     Dates: end: 20100405
  4. TEMOZOLOMIDE [Suspect]
     Dosage: FREQUENCY: 5 DAYS EVERY 28 DAYS
     Route: 048
     Dates: start: 20100507
  5. TEMOZOLOMIDE [Suspect]
     Dosage: 5 DAYS EVERY 28 DAYS
     Route: 048
     Dates: start: 20100603
  6. ASPIRIN [Concomitant]
     Dosage: START DATE: BEFORE 29 JAN 2010
  7. COQ-10 [Concomitant]
     Dosage: START DATE: BEFORE 29 JAN 2010
  8. RED YEAST RICE [Concomitant]
     Dosage: DRUG: RED YEAST RICE EXTRACT, START DATE: BEFORE 29 JAN 2010
  9. FISH OIL [Concomitant]
     Dosage: START DATE: BEFORE 29 JAN 2010
  10. CALCIUM/VITAMIN D [Concomitant]
     Dosage: START DATE: BEFORE 29 JAN 2010
  11. ANDRODERM [Concomitant]
     Dates: start: 20100326
  12. DHEA [Concomitant]
     Dates: start: 20100326
  13. MULTI-VITAMIN [Concomitant]
     Dates: start: 20100412
  14. MIRALAX [Concomitant]
     Dates: start: 20100414
  15. OMEPRAZOLE [Concomitant]
     Dates: start: 20100419
  16. MELATONIN [Concomitant]
     Dates: start: 20100430
  17. TYLENOL [Concomitant]
     Dates: start: 20100603
  18. TELMISARTAN [Concomitant]
     Dates: start: 20100603
  19. DIPHENHYDRAMINE [Concomitant]
     Dates: start: 20100603, end: 20100618
  20. BACTRIM DS [Concomitant]
     Dates: start: 20100609
  21. DECADRON [Concomitant]
     Dates: start: 20100204
  22. KLONOPIN [Concomitant]
     Dates: start: 20100617

REACTIONS (3)
  - CONFUSIONAL STATE [None]
  - CONVULSION [None]
  - DEHYDRATION [None]
